FAERS Safety Report 6291100-2 (Version None)
Quarter: 2009Q3

REPORT INFORMATION
  Report Type: 
  Country: None (occurrence: None)
  Receive Date: 20090730
  Receipt Date: 20090722
  Transmission Date: 20100115
  Serious: Yes (Other)
  Sender: FDA-Public Use
  Company Number: A0798256A

PATIENT
  Age: 63 Year
  Sex: Male

DRUGS (6)
  1. ADVAIR HFA [Suspect]
     Indication: CHRONIC OBSTRUCTIVE PULMONARY DISEASE
     Dosage: 1PUFF TWICE PER DAY
     Route: 055
     Dates: start: 20040101, end: 20060401
  2. ADVAIR HFA [Suspect]
     Dosage: 1PUFF TWICE PER DAY
     Route: 055
     Dates: start: 20061001
  3. FLOVENT [Suspect]
     Indication: EMPHYSEMA
     Dosage: 2PUFF TWICE PER DAY
     Route: 055
     Dates: start: 20060401, end: 20061001
  4. PROAIR HFA [Concomitant]
  5. ASPIRIN [Concomitant]
  6. CREAM [Concomitant]

REACTIONS (9)
  - BLOOD PRESSURE INCREASED [None]
  - DYSPHONIA [None]
  - HEART RATE INCREASED [None]
  - HYPERAESTHESIA [None]
  - NERVOUSNESS [None]
  - PNEUMONIA [None]
  - SKIN EXFOLIATION [None]
  - SKIN IRRITATION [None]
  - TENDERNESS [None]
